FAERS Safety Report 5097920-4 (Version None)
Quarter: 2006Q3

REPORT INFORMATION
  Report Type: 
  Country: None (occurrence: None)
  Receive Date: 20060905
  Receipt Date: 20060905
  Transmission Date: 20061208
  Serious: Yes (Life-Threatening, Hospitalization, Other)
  Sender: FDA-Public Use
  Company Number: None

PATIENT

DRUGS (2)
  1. DEPAKOTE [Suspect]
     Dosage: USUALLY ONE TO TWO 2 TO 4 TIMES DAILY PO
     Route: 048
  2. DEPAKOTE ER [Suspect]
     Dosage: USUALLY ONE ONCE DAILY PO
     Route: 048

REACTIONS (1)
  - MEDICATION ERROR [None]
